FAERS Safety Report 8523907-2 (Version None)
Quarter: 2012Q3

REPORT INFORMATION
  Report Type: 
  Country: None (occurrence: None)
  Receive Date: 20120720
  Receipt Date: 20120713
  Transmission Date: 20120928
  Serious: Yes (Death, Other)
  Sender: FDA-Public Use
  Company Number: CY-PFIZER INC-2012168680

PATIENT
  Age: 13 Year
  Sex: Male

DRUGS (1)
  1. ZITHROMAX [Suspect]

REACTIONS (1)
  - DEATH [None]
